FAERS Safety Report 7916896-2 (Version None)
Quarter: 2011Q4

REPORT INFORMATION
  Report Type: 
  Country: None (occurrence: None)
  Receive Date: 20111116
  Receipt Date: 20111108
  Transmission Date: 20120403
  Serious: Yes (Other)
  Sender: FDA-Public Use
  Company Number: CH-JNJFOC-20111103052

PATIENT
  Sex: Male

DRUGS (4)
  1. RISPERDAL [Suspect]
     Indication: SCHIZOPHRENIA
     Route: 048
     Dates: start: 20110301, end: 20111001
  2. WELLBUTRIN [Concomitant]
     Route: 048
  3. SUBUTEX [Concomitant]
     Route: 048
  4. RISPERDAL [Suspect]
     Indication: SLEEP DISORDER
     Route: 048
     Dates: start: 20110301, end: 20111001

REACTIONS (1)
  - EYELID PTOSIS [None]
